FAERS Safety Report 6106007-0 (Version None)
Quarter: 2009Q1

REPORT INFORMATION
  Report Type: 
  Country: None (occurrence: None)
  Receive Date: 20090306
  Receipt Date: 20090306
  Transmission Date: 20090719
  Serious: Yes (Other)
  Sender: FDA-Public Use
  Company Number: None

PATIENT
  Age: 75 Year
  Sex: Female
  Weight: 85.2762 kg

DRUGS (2)
  1. RECLAST [Suspect]
     Indication: OSTEOPOROSIS
     Dates: start: 20080926
  2. CORTISONE SHOTS [Concomitant]

REACTIONS (13)
  - ALOPECIA [None]
  - ARTHRALGIA [None]
  - CHILLS [None]
  - EYE HAEMORRHAGE [None]
  - FATIGUE [None]
  - HEADACHE [None]
  - HYPOAESTHESIA [None]
  - INFLUENZA [None]
  - MUSCLE SPASMS [None]
  - OCULAR ICTERUS [None]
  - ONYCHOCLASIS [None]
  - PARAESTHESIA [None]
  - RASH [None]
